FAERS Safety Report 16840487 (Version 2)
Quarter: 2019Q3

REPORT INFORMATION
  Report Type: Report from Study
  Country: IT (occurrence: IT)
  Receive Date: 20190923
  Receipt Date: 20190930
  Transmission Date: 20191005
  Serious: Yes (Other)
  Sender: FDA-Public Use
  Company Number: PHHY2019IT219562

PATIENT
  Age: 42 Year
  Sex: Female
  Weight: 47 kg

DRUGS (5)
  1. DECAPEPTYL [TRIPTORELIN EMBONATE] [Suspect]
     Active Substance: TRIPTORELIN PAMOATE
     Indication: BREAST CANCER METASTATIC
     Dosage: 3.75 MG, EVERY 28 DAYS
     Route: 030
     Dates: start: 20181025, end: 201906
  2. KISQALI [Suspect]
     Active Substance: RIBOCICLIB
     Dosage: 400 MG, UNK
     Route: 048
     Dates: start: 20190509, end: 20190605
  3. LETROZOLE. [Suspect]
     Active Substance: LETROZOLE
     Indication: BREAST CANCER METASTATIC
     Dosage: 2.5 MG, (1 TABLET), QD
     Route: 048
     Dates: start: 20181025, end: 20190605
  4. KISQALI [Suspect]
     Active Substance: RIBOCICLIB
     Dosage: 200 MG, UNK
     Route: 048
     Dates: start: 20190613
  5. KISQALI [Suspect]
     Active Substance: RIBOCICLIB
     Indication: BREAST CANCER METASTATIC
     Dosage: 400 MG, UNK
     Route: 048
     Dates: start: 20181025, end: 20190501

REACTIONS (1)
  - Neutropenia [Recovering/Resolving]

NARRATIVE: CASE EVENT DATE: 20190502
